FAERS Safety Report 25551776 (Version 1)
Quarter: 2025Q3

REPORT INFORMATION
  Report Type: Spontaneous
  Country: US (occurrence: US)
  Receive Date: 20250714
  Receipt Date: 20250714
  Transmission Date: 20251021
  Serious: No
  Sender: ASTELLAS
  Company Number: US-ASTELLAS-2025-AER-036836

PATIENT
  Age: 68 Year
  Sex: Female

DRUGS (2)
  1. VEOZAH [Suspect]
     Active Substance: FEZOLINETANT
     Indication: Hot flush
     Route: 065
     Dates: start: 202506, end: 20250701
  2. VEOZAH [Suspect]
     Active Substance: FEZOLINETANT
     Dosage: CUT ONE PILL IN HALF TODAY
     Route: 065
     Dates: start: 20250702

REACTIONS (2)
  - Nystagmus [Unknown]
  - Wrong technique in product usage process [Unknown]

NARRATIVE: CASE EVENT DATE: 20250601
